FAERS Safety Report 5338997-8 (Version None)
Quarter: 2007Q2

REPORT INFORMATION
  Report Type: 
  Country: None (occurrence: None)
  Receive Date: 20070525
  Receipt Date: 20070514
  Transmission Date: 20071010
  Serious: Yes (Other)
  Sender: FDA-Public Use
  Company Number: 16141

PATIENT
  Age: 7 Month
  Sex: Male

DRUGS (5)
  1. DOXORUBICIN HCL [Suspect]
     Indication: CLEAR CELL SARCOMA OF THE KIDNEY
  2. VINCRISTINE [Suspect]
     Indication: CLEAR CELL SARCOMA OF THE KIDNEY
  3. DACTINOMYCIN [Suspect]
     Indication: CLEAR CELL SARCOMA OF THE KIDNEY
  4. ATENOLOL [Concomitant]
  5. NIFEDIPINE [Concomitant]

REACTIONS (5)
  - BONE MARROW FAILURE [None]
  - DECREASED APPETITE [None]
  - DRUG INTOLERANCE [None]
  - VOMITING [None]
  - WEIGHT DECREASED [None]
